FAERS Safety Report 16378068 (Version 2)
Quarter: 2019Q3

REPORT INFORMATION
  Report Type: Report from Study
  Country: CH (occurrence: CH)
  Receive Date: 20190531
  Receipt Date: 20190708
  Transmission Date: 20191004
  Serious: Yes (Hospitalization, Other)
  Sender: FDA-Public Use
  Company Number: CH-BAYER-2019-100679

PATIENT
  Age: 27 Year
  Sex: Female

DRUGS (1)
  1. KYLEENA [Suspect]
     Active Substance: LEVONORGESTREL
     Indication: CONTRACEPTION
     Dosage: 17.5 MCG/24HR, CONT
     Route: 015
     Dates: start: 20190416, end: 20190517

REACTIONS (12)
  - Dysmenorrhoea [Recovered/Resolved]
  - Thrombocytosis [Recovered/Resolved]
  - Pyrexia [Recovered/Resolved]
  - Gynaecological chlamydia infection [Recovered/Resolved]
  - Abdominal abscess [Recovered/Resolved]
  - Gardnerella test positive [None]
  - Tubo-ovarian abscess [Recovered/Resolved]
  - Salpingitis [Recovered/Resolved]
  - C-reactive protein increased [Recovered/Resolved]
  - Purulent discharge [Recovered/Resolved]
  - Abdominal pain lower [Recovered/Resolved]
  - Abdominal adhesions [Recovered/Resolved]

NARRATIVE: CASE EVENT DATE: 20190521
